FAERS Safety Report 17698727 (Version 1)
Quarter: 2020Q2

REPORT INFORMATION
  Report Type: Spontaneous
  Country: US (occurrence: US)
  Receive Date: 20200422
  Receipt Date: 20200422
  Transmission Date: 20200714
  Serious: Yes (Hospitalization)
  Sender: FDA-Public Use
  Company Number: None

PATIENT
  Age: 28 Year
  Sex: Female
  Weight: 79 kg

DRUGS (1)
  1. ACETAMINOPHEN (ACETAMINOPHEN 325MG TAB) [Suspect]
     Active Substance: ACETAMINOPHEN
     Dates: start: 20200201, end: 20200202

REACTIONS (5)
  - Nausea [None]
  - Overdose [None]
  - Hepatic enzyme increased [None]
  - Hepatotoxicity [None]
  - Vomiting [None]

NARRATIVE: CASE EVENT DATE: 20200206
